FAERS Safety Report 9116604 (Version 2)
Quarter: 2013Q2

REPORT INFORMATION
  Report Type: Spontaneous
  Country: FR (occurrence: FR)
  Receive Date: 20130225
  Receipt Date: 20130517
  Transmission Date: 20140414
  Serious: Yes (Hospitalization, Other)
  Sender: FDA-Public Use
  Company Number: FR-PFIZER INC-2013062317

PATIENT
  Age: 15 Month
  Sex: Female

DRUGS (2)
  1. ADVIL ENFANTS ET NOURRISSONS [Suspect]
     Indication: PYREXIA
     Dosage: UNK
     Route: 048
     Dates: start: 201302, end: 201302
  2. EFFERALGAN [Suspect]
     Dosage: UNK

REACTIONS (5)
  - Tonsillar haemorrhage [Recovered/Resolved]
  - Ulcer [Recovered/Resolved]
  - Pharyngeal erythema [Recovered/Resolved]
  - Thrombosis [Recovered/Resolved]
  - Lung disorder [Unknown]
